FAERS Safety Report 9888563 (Version 1)
Quarter: 2014Q1

REPORT INFORMATION
  Report Type: Spontaneous
  Country: NL (occurrence: NL)
  Receive Date: 20140211
  Receipt Date: 20140211
  Transmission Date: 20141002
  Serious: Yes (Congenital Anomaly)
  Sender: FDA-Public Use
  Company Number: NL-TEVA-461471ISR

PATIENT
  Age: 0 Day
  Sex: 0

DRUGS (2)
  1. QVAR [Suspect]
     Indication: ASTHMA
     Route: 064
     Dates: start: 2013
  2. ATROVENT AEROSOL 20MCG/DO SPBS 200DO + INHALATOR [Suspect]
     Indication: ASTHMA
     Route: 064
     Dates: start: 2013

REACTIONS (1)
  - Congenital anomaly [Unknown]
